FAERS Safety Report 9441469 (Version 1)
Quarter: 2013Q3

REPORT INFORMATION
  Report Type: Spontaneous
  Country: FR (occurrence: FR)
  Receive Date: 20130805
  Receipt Date: 20130805
  Transmission Date: 20140515
  Serious: Yes (Other)
  Sender: FDA-Public Use
  Company Number: PHHY2013FR082303

PATIENT
  Age: 52 Year
  Sex: Male

DRUGS (7)
  1. AMOXICILLIN+CLAVULANATE SANDOZ [Suspect]
     Indication: PRODUCT USED FOR UNKNOWN INDICATION
     Dosage: 1 G/200 MG BETWEEN 2.0 AND 2.20 PM
     Route: 042
     Dates: start: 20130601, end: 20130601
  2. PARACETAMOL [Suspect]
     Indication: PAIN
     Dosage: 1 G/100 ML BETWEEN 5.00 AND 5.20 PM
     Route: 042
     Dates: start: 20130601
  3. TRAMADOL LAVOISIER [Suspect]
     Indication: PAIN
     Dosage: 200 MG, DAILY
     Route: 042
     Dates: start: 20130601, end: 20130601
  4. NEFOPAM [Suspect]
     Indication: PAIN
     Dosage: 20 MG, BETWEEN 7.00 AND 7.20 PM
     Route: 042
     Dates: start: 20130601, end: 201306
  5. SOLU MEDROL [Suspect]
     Indication: PHARYNGEAL OEDEMA
     Dosage: 250 MG, UNK
     Dates: start: 20130601, end: 201306
  6. POLARAMINE [Suspect]
     Indication: PHARYNGEAL OEDEMA
     Dosage: UNK UKN, UNK
     Dates: start: 20130601
  7. OFLOCET [Suspect]
     Indication: PRODUCT USED FOR UNKNOWN INDICATION
     Dosage: 200 MG, BID
     Dates: start: 201306

REACTIONS (1)
  - Diabetes mellitus [Recovered/Resolved with Sequelae]
